FAERS Safety Report 6382199-3 (Version None)
Quarter: 2009Q3

REPORT INFORMATION
  Report Type: 
  Country: None (occurrence: None)
  Receive Date: 20090930
  Receipt Date: 20090922
  Transmission Date: 20100115
  Serious: Yes (Hospitalization)
  Sender: FDA-Public Use
  Company Number: FR-BRISTOL-MYERS SQUIBB COMPANY-14796163

PATIENT
  Age: 60 Year
  Sex: Male

DRUGS (4)
  1. ERBITUX [Suspect]
     Indication: COLORECTAL CANCER
     Route: 042
     Dates: start: 20090915
  2. FOLINIC ACID [Concomitant]
     Indication: COLORECTAL CANCER
     Dosage: SOLUTION FOR INJECTION FOR MORE THAN 1 MONTH
     Route: 042
  3. FLUOROURACIL [Concomitant]
     Indication: COLORECTAL CANCER
     Dosage: SOLUTION FOR INJECTION FOR MORE THAN 1 MONTH
     Route: 042
  4. IRINOTECAN HCL [Concomitant]
     Indication: COLORECTAL CANCER
     Dosage: SOLUTION FOR INJECTION FOR MORE THAN 1 MONTH
     Route: 042

REACTIONS (4)
  - ABDOMINAL PAIN [None]
  - GASTROINTESTINAL NECROSIS [None]
  - INTESTINAL OBSTRUCTION [None]
  - VOMITING [None]
